FAERS Safety Report 13144790 (Version 1)
Quarter: 2017Q1

REPORT INFORMATION
  Report Type: Spontaneous
  Country: US (occurrence: US)
  Receive Date: 20170124
  Receipt Date: 20170124
  Transmission Date: 20170428
  Serious: Yes (Death, Hospitalization, Other)
  Sender: FDA-Public Use
  Company Number: US-PFIZER INC-2017026792

PATIENT
  Age: 49 Year
  Sex: Female

DRUGS (2)
  1. DILTIAZEM HCL [Suspect]
     Active Substance: DILTIAZEM HYDROCHLORIDE
     Dosage: 80 TABLETS OF 120MG DILTIAZEM (EXTENDED RELEASE)
     Route: 048
  2. DOXYLAMINE [Suspect]
     Active Substance: DOXYLAMINE
     Dosage: 192 TABLETS OF 25MG DOXYLAMINE
     Route: 048

REACTIONS (7)
  - Shock [Fatal]
  - Bradycardia [Unknown]
  - Intestinal gangrene [Fatal]
  - Multiple organ dysfunction syndrome [Fatal]
  - Completed suicide [Fatal]
  - Rhabdomyolysis [Unknown]
  - Hypotension [Unknown]

NARRATIVE: CASE EVENT DATE: 2015
